FAERS Safety Report 6720315-1 (Version None)
Quarter: 2010Q2

REPORT INFORMATION
  Report Type: 
  Country: None (occurrence: None)
  Receive Date: 20100507
  Receipt Date: 20100427
  Transmission Date: 20101027
  Serious: Yes (Other)
  Sender: FDA-Public Use
  Company Number: 2010SP024951

PATIENT
  Age: 62 Year
  Sex: Female

DRUGS (3)
  1. CLARITIN [Suspect]
     Indication: URTICARIA
     Dosage: 10 MG;QD;PO
     Route: 048
     Dates: start: 20100422
  2. SERETIDE [Concomitant]
  3. SINGULAIR [Concomitant]

REACTIONS (2)
  - EXTRASYSTOLES [None]
  - PALPITATIONS [None]
